FAERS Safety Report 7787879-0 (Version None)
Quarter: 2011Q3

REPORT INFORMATION
  Report Type: 
  Country: None (occurrence: None)
  Receive Date: 20110930
  Receipt Date: 20110921
  Transmission Date: 20111222
  Serious: No
  Sender: FDA-Public Use
  Company Number: US-BIOGENIDEC-2011BI033125

PATIENT
  Age: 50 Year
  Sex: Female

DRUGS (3)
  1. TYSABRI [Suspect]
     Indication: MULTIPLE SCLEROSIS
     Route: 042
     Dates: start: 20110331
  2. AVONEX [Concomitant]
     Route: 030
     Dates: start: 20060604
  3. AVONEX [Concomitant]
     Indication: MULTIPLE SCLEROSIS
     Route: 030

REACTIONS (10)
  - URTICARIA [None]
  - FATIGUE [None]
  - SWELLING FACE [None]
  - ERYTHEMA [None]
  - SENSATION OF FOREIGN BODY [None]
  - PRURITUS [None]
  - ARTHROPOD STING [None]
  - ORAL MUCOSAL ERYTHEMA [None]
  - DIZZINESS [None]
  - OEDEMA MOUTH [None]
